FAERS Safety Report 17528577 (Version 1)
Quarter: 2020Q1

REPORT INFORMATION
  Report Type: Spontaneous
  Country: ES (occurrence: ES)
  Receive Date: 20200311
  Receipt Date: 20200311
  Transmission Date: 20200409
  Serious: Yes (Other)
  Sender: FDA-Public Use
  Company Number: ES-ASTRAZENECA-2020SE14451

PATIENT
  Age: 77 Year
  Sex: Female
  Weight: 65 kg

DRUGS (2)
  1. TAGRISSO [Suspect]
     Active Substance: OSIMERTINIB
     Indication: LUNG ADENOCARCINOMA STAGE IV
     Route: 048
     Dates: start: 20200107, end: 20200117
  2. TAGRISSO [Suspect]
     Active Substance: OSIMERTINIB
     Indication: EGFR GENE MUTATION
     Route: 048
     Dates: start: 20200107, end: 20200117

REACTIONS (1)
  - Blindness [Not Recovered/Not Resolved]

NARRATIVE: CASE EVENT DATE: 20200113
